FAERS Safety Report 5808501-6 (Version None)
Quarter: 2008Q3

REPORT INFORMATION
  Report Type: 
  Country: None (occurrence: None)
  Receive Date: 20080714
  Receipt Date: 20080701
  Transmission Date: 20090109
  Serious: Yes (Death, Hospitalization)
  Sender: FDA-Public Use
  Company Number: JP-AMGEN-US285061

PATIENT
  Sex: Female
  Weight: 39 kg

DRUGS (32)
  1. ENBREL [Suspect]
     Indication: RHEUMATOID ARTHRITIS
     Route: 058
     Dates: start: 20060726, end: 20080520
  2. ZANTAC [Concomitant]
     Route: 065
  3. LOXONIN [Concomitant]
     Route: 065
  4. METOLATE [Concomitant]
     Route: 065
  5. FOLIAMIN [Concomitant]
     Route: 065
  6. PROMAC [Concomitant]
     Route: 065
  7. PROGRAF [Concomitant]
     Route: 065
  8. GASLON [Concomitant]
     Route: 065
  9. FLUCAM [Concomitant]
     Route: 065
  10. TAKEPRON [Concomitant]
     Route: 065
  11. ACETAMINOPHEN [Concomitant]
     Route: 065
  12. CLARITHROMYCIN [Concomitant]
     Route: 065
  13. MUCOSOLVAN [Concomitant]
     Route: 065
  14. BREDININ [Concomitant]
     Route: 065
  15. GANATON [Concomitant]
     Route: 065
  16. BERIZYM [Concomitant]
     Route: 065
  17. ZYLORIC [Concomitant]
     Route: 065
  18. KETOPROFEN [Concomitant]
     Route: 065
  19. VOLTAREN [Concomitant]
     Route: 065
  20. MILTAX [Concomitant]
     Route: 065
  21. ISODINE [Concomitant]
     Route: 065
  22. XYLOCAINE [Concomitant]
     Route: 065
  23. INTEBAN [Concomitant]
     Route: 065
  24. NEUROVITAN [Concomitant]
     Route: 065
  25. GRANDAXIN [Concomitant]
     Route: 065
  26. CYANOCOBALAMIN [Concomitant]
     Route: 065
  27. COMELIAN [Concomitant]
     Route: 065
  28. MAGNESIUM OXIDE [Concomitant]
     Route: 065
  29. FUNGIZONE [Concomitant]
     Route: 065
  30. AVELOX [Concomitant]
     Route: 065
  31. PREDNISOLONE [Concomitant]
     Route: 065
  32. PROMETHAZINE METHYLENE DISALICYLATE [Concomitant]
     Route: 065

REACTIONS (3)
  - DIZZINESS [None]
  - SPINAL DEFORMITY [None]
  - VERTEBRAL ARTERY OCCLUSION [None]
